FAERS Safety Report 9109254 (Version 1)
Quarter: 2013Q1

REPORT INFORMATION
  Report Type: Report from Study
  Country: ES (occurrence: ES)
  Receive Date: 20130222
  Receipt Date: 20130222
  Transmission Date: 20140127
  Serious: Yes (Hospitalization)
  Sender: FDA-Public Use
  Company Number: ES-BRISTOL-MYERS SQUIBB COMPANY-15875024

PATIENT
  Age: 75 Year
  Sex: Male

DRUGS (1)
  1. IPILIMUMAB [Suspect]
     Indication: PROSTATE CANCER
     Dosage: 780 MG TOTAL DOSE
     Route: 042
     Dates: start: 20110601, end: 20110722

REACTIONS (2)
  - Toxicity to various agents [Recovered/Resolved]
  - Gastroenteritis [Recovered/Resolved]
